FAERS Safety Report 15235028 (Version 1)
Quarter: 2018Q3

REPORT INFORMATION
  Report Type: Report from Study
  Country: US (occurrence: US)
  Receive Date: 20180803
  Receipt Date: 20180803
  Transmission Date: 20181010
  Serious: Yes (Other)
  Sender: FDA-Public Use
  Company Number: US-AEGERION PHARMACEUTICAL, INC-AEGR003882

PATIENT
  Age: 40 Year
  Sex: Female
  Weight: 73.47 kg

DRUGS (1)
  1. MYALEPT [Suspect]
     Active Substance: METRELEPTIN
     Indication: LIPODYSTROPHY ACQUIRED
     Dosage: 5 MG, UNK
     Route: 058

REACTIONS (7)
  - Fat tissue increased [Unknown]
  - Hormone level abnormal [Unknown]
  - Hypoglycaemia [Unknown]
  - Cataract [Unknown]
  - Aggression [Unknown]
  - Mood swings [Unknown]
  - Nausea [Unknown]

NARRATIVE: CASE EVENT DATE: 201807
